FAERS Safety Report 14965400 (Version 1)
Quarter: 2018Q2

REPORT INFORMATION
  Report Type: Spontaneous
  Country: US (occurrence: US)
  Receive Date: 20180601
  Receipt Date: 20180601
  Transmission Date: 20180711
  Serious: No
  Sender: FDA-Public Use
  Company Number: US-BAUSCH-BL-2017-033044

PATIENT
  Age: 74 Year
  Sex: Female

DRUGS (6)
  1. TRIAMCINOLONE [Concomitant]
     Active Substance: TRIAMCINOLONE
     Indication: DERMATITIS
     Route: 061
  2. TRIAMCINOLONE [Concomitant]
     Active Substance: TRIAMCINOLONE
     Indication: VULVOVAGINAL RASH
  3. CLOBETASOL [Concomitant]
     Active Substance: CLOBETASOL
     Indication: DERMATITIS
     Route: 061
  4. CLOBETASOL [Concomitant]
     Active Substance: CLOBETASOL
     Indication: VULVOVAGINAL RASH
  5. ELIDEL [Suspect]
     Active Substance: PIMECROLIMUS
     Indication: DERMATITIS
     Route: 061
     Dates: start: 201711
  6. ELIDEL [Suspect]
     Active Substance: PIMECROLIMUS
     Indication: VULVOVAGINAL RASH

REACTIONS (4)
  - Product storage error [Unknown]
  - Application site erythema [Unknown]
  - Unevaluable event [Unknown]
  - Application site pain [Unknown]

NARRATIVE: CASE EVENT DATE: 201711
